FAERS Safety Report 17518226 (Version 2)
Quarter: 2020Q1

REPORT INFORMATION
  Report Type: Spontaneous
  Country: US (occurrence: US)
  Receive Date: 20200309
  Receipt Date: 20200320
  Transmission Date: 20200409
  Serious: Yes (Death, Other)
  Sender: FDA-Public Use
  Company Number: US-ASTRAZENECA-2018SF65298

PATIENT
  Age: 24131 Day
  Sex: Male

DRUGS (29)
  1. DEXILANT [Suspect]
     Active Substance: DEXLANSOPRAZOLE
     Route: 065
     Dates: start: 2006, end: 2014
  2. LISINOPRIL. [Concomitant]
     Active Substance: LISINOPRIL
  3. NEXIUM [Suspect]
     Active Substance: ESOMEPRAZOLE MAGNESIUM
     Route: 048
     Dates: start: 2006, end: 2014
  4. NEXIUM [Suspect]
     Active Substance: ESOMEPRAZOLE MAGNESIUM
     Route: 048
     Dates: start: 20060812
  5. PROTONIX [Suspect]
     Active Substance: PANTOPRAZOLE SODIUM
     Route: 048
     Dates: start: 20140703
  6. LIPITOR [Concomitant]
     Active Substance: ATORVASTATIN CALCIUM
  7. NITROGLYCERIN. [Concomitant]
     Active Substance: NITROGLYCERIN
  8. CIPRO [Concomitant]
     Active Substance: CIPROFLOXACIN HYDROCHLORIDE
  9. COLACE [Concomitant]
     Active Substance: DOCUSATE SODIUM
  10. NORCO [Concomitant]
     Active Substance: ACETAMINOPHEN\HYDROCODONE BITARTRATE
  11. GLIPIZIDE. [Concomitant]
     Active Substance: GLIPIZIDE
  12. AMIODARONE [Concomitant]
     Active Substance: AMIODARONE
  13. MORPHINE [Concomitant]
     Active Substance: MORPHINE
  14. FUROSEMIDE. [Concomitant]
     Active Substance: FUROSEMIDE
  15. CARVEDILOL. [Concomitant]
     Active Substance: CARVEDILOL
  16. NORVASC [Concomitant]
     Active Substance: AMLODIPINE BESYLATE
  17. LYRICA [Concomitant]
     Active Substance: PREGABALIN
  18. ATENOLOL. [Concomitant]
     Active Substance: ATENOLOL
  19. ASPIRIN. [Concomitant]
     Active Substance: ASPIRIN
  20. DEXILANT [Suspect]
     Active Substance: DEXLANSOPRAZOLE
     Route: 065
     Dates: start: 20110613
  21. CLINDAMYCIN. [Concomitant]
     Active Substance: CLINDAMYCIN
  22. IMDUR [Concomitant]
     Active Substance: ISOSORBIDE MONONITRATE
  23. PREVACID [Suspect]
     Active Substance: LANSOPRAZOLE
     Route: 065
     Dates: start: 2006, end: 2014
  24. PREVACID [Suspect]
     Active Substance: LANSOPRAZOLE
     Route: 048
     Dates: start: 20090926
  25. PROTONIX [Suspect]
     Active Substance: PANTOPRAZOLE SODIUM
     Route: 048
     Dates: start: 2006, end: 2014
  26. CALCIUM ACETATE. [Concomitant]
     Active Substance: CALCIUM ACETATE
  27. WELLBUTRIN [Concomitant]
     Active Substance: BUPROPION HYDROCHLORIDE
  28. WARFARIN SODIUM. [Concomitant]
     Active Substance: WARFARIN SODIUM
  29. PROMETHAZINE HCL [Concomitant]
     Active Substance: PROMETHAZINE HYDROCHLORIDE

REACTIONS (9)
  - Peripheral vascular disorder [Fatal]
  - Rebound acid hypersecretion [Unknown]
  - End stage renal disease [Unknown]
  - Coronary artery disease [Fatal]
  - Multiple organ dysfunction syndrome [Fatal]
  - Chronic kidney disease [Fatal]
  - Hypertension [Fatal]
  - Renal failure [Unknown]
  - Diabetes mellitus [Fatal]

NARRATIVE: CASE EVENT DATE: 20120426
